FAERS Safety Report 8559707-7 (Version None)
Quarter: 2012Q2

REPORT INFORMATION
  Report Type: 
  Country: None (occurrence: None)
  Receive Date: 20120418
  Receipt Date: 20100504
  Transmission Date: 20120825
  Serious: Yes (Life-Threatening)
  Sender: FDA-Public Use
  Company Number: PHHY2010US29933

PATIENT
  Sex: Male

DRUGS (1)
  1. DIOVAN [Suspect]
     Dosage: 1 TABLET EACH OF 160 MG AND 320 MG, ORAL
     Route: 048

REACTIONS (2)
  - ANGIOEDEMA [None]
  - DYSPNOEA [None]
